FAERS Safety Report 16426855 (Version 1)
Quarter: 2020Q3

REPORT INFORMATION
  Report Type: Spontaneous
  Country: ES (occurrence: ES)
  Receive Date: 20190613
  Receipt Date: 20190613
  Transmission Date: 20201104
  Serious: Yes (Hospitalization)
  Sender: FDA-Public Use
  Company Number: ES-ACCORD-132667

PATIENT
  Age: 51 Year
  Sex: Male

DRUGS (12)
  1. PREDNISONE. [Suspect]
     Active Substance: PREDNISONE
     Indication: ASTHMA
     Dosage: 5?10 MG EVERY 24 HOURS
     Route: 048
     Dates: start: 201503
  2. MONTELUKAST [Suspect]
     Active Substance: MONTELUKAST SODIUM
     Indication: ASTHMA
     Dosage: 10 MILLIGRAM DAILY;
     Route: 065
     Dates: start: 201403
  3. PREDNISONE. [Suspect]
     Active Substance: PREDNISONE
     Indication: ASTHMA
     Dosage: 5?10 MG DAILY
     Route: 048
  4. FORMOTEROL/FLUTICASONE [Suspect]
     Active Substance: FLUTICASONE PROPIONATE\FORMOTEROL FUMARATE
     Indication: ASTHMA
     Dosage: ALSO RECEIVED FOR ALLERGIC ASTHMA, TWO PUFFS
  5. PREDNISONE. [Suspect]
     Active Substance: PREDNISONE
     Indication: ASTHMA
     Dosage: 5?30 MG EVERY 24 HOURS
     Route: 048
     Dates: start: 201608
  6. FLUTICASONE PROPIONATE/SALMETEROL XINAFOATE [Suspect]
     Active Substance: FLUTICASONE PROPIONATE\SALMETEROL XINAFOATE
     Indication: ASTHMA
     Dosage: TWO PUFFS (CONTAINING SALMETEROL/FLUTICASONE PROPIONATE 22/250) TWICE DAILY
     Route: 055
     Dates: start: 201403
  7. METRONIDAZOLE. [Concomitant]
     Active Substance: METRONIDAZOLE
     Indication: BLASTOCYSTIS INFECTION
     Route: 065
  8. TIOTROPIUM/TIOTROPIUM BROMIDE [Suspect]
     Active Substance: TIOTROPIUM BROMIDE
     Indication: ASTHMA
     Route: 065
     Dates: start: 201403
  9. PREDNISONE. [Suspect]
     Active Substance: PREDNISONE
     Indication: ASTHMA
     Route: 048
     Dates: start: 201403
  10. LEBRIKIZUMAB. [Suspect]
     Active Substance: LEBRIKIZUMAB
     Indication: ASTHMA
     Dosage: ALSO RECEIVED FOR ALLERGIC ASTHMA
  11. OMALIZUMAB. [Suspect]
     Active Substance: OMALIZUMAB
     Indication: ASTHMA
     Route: 065
  12. PREDNISONE. [Suspect]
     Active Substance: PREDNISONE
     Indication: ASTHMA
     Dosage: 10?30 MG EVERY 24 HOURS
     Route: 048
     Dates: start: 201711

REACTIONS (2)
  - Asthma [Unknown]
  - Treatment failure [Unknown]
